FAERS Safety Report 21699876 (Version 1)
Quarter: 2022Q4

REPORT INFORMATION
  Report Type: Spontaneous
  Country: PL (occurrence: PL)
  Receive Date: 20221208
  Receipt Date: 20221208
  Transmission Date: 20230113
  Serious: Yes (Disabling)
  Sender: FDA-Public Use
  Company Number: PL-Accord-267530

PATIENT
  Age: 51 Year
  Sex: Female

DRUGS (3)
  1. SERTRALINE [Interacting]
     Active Substance: SERTRALINE HYDROCHLORIDE
     Indication: Depression
     Dosage: IN THE MORNING, INCREASED TO 100 MG / DAY
  2. ALPRAZOLAM [Interacting]
     Active Substance: ALPRAZOLAM
     Indication: Depression
  3. MIANSERIN [Interacting]
     Active Substance: MIANSERIN
     Indication: Depression
     Dosage: PER NIGHT

REACTIONS (4)
  - Drug interaction [Unknown]
  - Drooling [Recovered/Resolved]
  - Dysarthria [Recovered/Resolved]
  - Impaired work ability [Recovered/Resolved]
